FAERS Safety Report 15777427 (Version 1)
Quarter: 2018Q4

REPORT INFORMATION
  Report Type: Spontaneous
  Country: US (occurrence: US)
  Receive Date: 20181230
  Receipt Date: 20181230
  Transmission Date: 20190205
  Serious: Yes (Hospitalization, Other)
  Sender: FDA-Public Use
  Company Number: None

PATIENT
  Age: 28 Year
  Sex: Female
  Weight: 80.74 kg

DRUGS (2)
  1. LEVITHYROXINE [Concomitant]
  2. NUVARING [Suspect]
     Active Substance: ETHINYL ESTRADIOL\ETONOGESTREL

REACTIONS (6)
  - Muscle strain [None]
  - Insomnia [None]
  - Pulmonary thrombosis [None]
  - Chest pain [None]
  - Oxygen saturation decreased [None]
  - Pulmonary embolism [None]

NARRATIVE: CASE EVENT DATE: 20181221
